FAERS Safety Report 16868531 (Version 1)
Quarter: 2019Q3

REPORT INFORMATION
  Report Type: Spontaneous
  Country: US (occurrence: US)
  Receive Date: 20190930
  Receipt Date: 20190930
  Transmission Date: 20191005
  Serious: Yes (Other)
  Sender: FDA-Public Use
  Company Number: US-009507513-1909USA011545

PATIENT

DRUGS (1)
  1. KEYTRUDA [Suspect]
     Active Substance: PEMBROLIZUMAB
     Indication: COLON NEOPLASM

REACTIONS (5)
  - Thyroid hormones increased [Unknown]
  - Dry mouth [Unknown]
  - Breast cancer [Unknown]
  - Drug effective for unapproved indication [Unknown]
  - Muscle spasms [Unknown]
